FAERS Safety Report 23193448 (Version 3)
Quarter: 2024Q3

REPORT INFORMATION
  Report Type: Spontaneous
  Country: JP (occurrence: JP)
  Receive Date: 20231116
  Receipt Date: 20240702
  Transmission Date: 20241017
  Serious: Yes (Other)
  Sender: BRISTOL MYERS SQUIBB
  Company Number: JP-BRISTOL-MYERS SQUIBB COMPANY-2023-162400

PATIENT
  Age: 7 Decade
  Sex: Female

DRUGS (3)
  1. ORENCIA [Suspect]
     Active Substance: ABATACEPT
     Indication: Rheumatoid arthritis
     Route: 041
     Dates: start: 20231012, end: 20231012
  2. ORENCIA [Suspect]
     Active Substance: ABATACEPT
     Route: 041
     Dates: start: 20231026, end: 20231026
  3. ORENCIA [Suspect]
     Active Substance: ABATACEPT
     Route: 041
     Dates: start: 20231109, end: 20231109

REACTIONS (3)
  - Neuropathy peripheral [Recovered/Resolved]
  - Tongue movement disturbance [Recovered/Resolved]
  - Tongue paralysis [Recovered/Resolved]

NARRATIVE: CASE EVENT DATE: 20231109
